FAERS Safety Report 6612849-5 (Version None)
Quarter: 2010Q1

REPORT INFORMATION
  Report Type: 
  Country: None (occurrence: None)
  Receive Date: 20100303
  Receipt Date: 20100216
  Transmission Date: 20100710
  Serious: Yes (Life-Threatening, Hospitalization)
  Sender: FDA-Public Use
  Company Number: ES-MERCK-0311USA01776

PATIENT
  Age: 49 Year
  Sex: Female

DRUGS (2)
  1. MODURETIC 5-50 [Suspect]
     Indication: OEDEMA PERIPHERAL
     Route: 048
     Dates: start: 20030724, end: 20030724
  2. THALIDOMIDE [Concomitant]
     Indication: LICHEN PLANUS
     Route: 065
     Dates: start: 20030401, end: 20030701

REACTIONS (4)
  - ACUTE RESPIRATORY FAILURE [None]
  - CIRCULATORY COLLAPSE [None]
  - NON-CARDIOGENIC PULMONARY OEDEMA [None]
  - PULMONARY OEDEMA [None]
